FAERS Safety Report 14788857 (Version 1)
Quarter: 2018Q2

REPORT INFORMATION
  Report Type: Spontaneous
  Country: US (occurrence: US)
  Receive Date: 20180423
  Receipt Date: 20180423
  Transmission Date: 20180711
  Serious: Yes (Hospitalization)
  Sender: FDA-Public Use
  Company Number: US-JNJFOC-20180412296

PATIENT
  Age: 65 Year
  Sex: Female

DRUGS (10)
  1. LEVOTHYROXINE. [Concomitant]
     Active Substance: LEVOTHYROXINE
  2. TIZANIDINE. [Concomitant]
     Active Substance: TIZANIDINE
  3. PREDNISONE. [Concomitant]
     Active Substance: PREDNISONE
  4. IMBRUVICA [Suspect]
     Active Substance: IBRUTINIB
     Indication: CHRONIC LYMPHOCYTIC LEUKAEMIA
     Route: 048
     Dates: start: 20160912
  5. QUETIAPINE. [Concomitant]
     Active Substance: QUETIAPINE
  6. CLOPIDOGREL [Concomitant]
     Active Substance: CLOPIDOGREL BISULFATE
  7. CHLORTHALIDONE. [Concomitant]
     Active Substance: CHLORTHALIDONE
  8. ALLOPURINOL. [Concomitant]
     Active Substance: ALLOPURINOL
  9. METOPROLOL. [Concomitant]
     Active Substance: METOPROLOL
  10. CLONIDINE. [Concomitant]
     Active Substance: CLONIDINE

REACTIONS (4)
  - White blood cell count decreased [Unknown]
  - Diarrhoea [Unknown]
  - Infection [Unknown]
  - Vomiting [Unknown]

NARRATIVE: CASE EVENT DATE: 201803
